FAERS Safety Report 7321709-6 (Version None)
Quarter: 2011Q1

REPORT INFORMATION
  Report Type: 
  Country: None (occurrence: None)
  Receive Date: 20110228
  Receipt Date: 20100722
  Transmission Date: 20110831
  Serious: Yes (Other)
  Sender: FDA-Public Use
  Company Number: US-PFIZER INC-2010062554

PATIENT
  Sex: Male
  Weight: 77 kg

DRUGS (7)
  1. PAXIL [Concomitant]
     Dosage: UNK
  2. GEODON [Suspect]
     Dosage: 20 MG, 2X/DAY
     Route: 048
     Dates: start: 20100322, end: 20100425
  3. GEODON [Suspect]
     Dosage: 60 MG, 2X/DAY
     Dates: start: 20100426, end: 20100518
  4. LAMICTAL [Concomitant]
     Dosage: UNK
     Route: 048
  5. ALBUTEROL [Concomitant]
     Indication: ASTHMA
     Dosage: UNK
  6. ATIVAN [Concomitant]
     Dosage: UNK
  7. GEODON [Suspect]
     Indication: SCHIZOAFFECTIVE DISORDER
     Dosage: UNK, 2X/DAY
     Route: 048
     Dates: start: 20100101, end: 20100501

REACTIONS (7)
  - MYDRIASIS [None]
  - WEIGHT INCREASED [None]
  - RESTLESSNESS [None]
  - INSOMNIA [None]
  - MALAISE [None]
  - PAIN IN EXTREMITY [None]
  - BODY TEMPERATURE FLUCTUATION [None]
